FAERS Safety Report 4304308-X (Version None)
Quarter: 2004Q1

REPORT INFORMATION
  Report Type: 
  Country: None (occurrence: None)
  Receive Date: 20040223
  Receipt Date: 20040212
  Transmission Date: 20041129
  Serious: Yes (Other)
  Sender: FDA-Public Use
  Company Number: HQWYE958712FEB04

PATIENT
  Age: 46 Year
  Sex: Female

DRUGS (2)
  1. INDERAL [Suspect]
     Indication: PALPITATIONS
     Dosage: ORAL
     Route: 048
     Dates: start: 20010625, end: 20010627
  2. FERROUS SULFATE TAB [Concomitant]

REACTIONS (1)
  - SUPRAVENTRICULAR TACHYCARDIA [None]
